FAERS Safety Report 13140735 (Version 1)
Quarter: 2017Q1

REPORT INFORMATION
  Report Type: Spontaneous
  Country: US (occurrence: US)
  Receive Date: 20170123
  Receipt Date: 20170123
  Transmission Date: 20170428
  Serious: No
  Sender: FDA-Public Use
  Company Number: US-UNITED THERAPEUTICS-UNT-2016-015923

PATIENT
  Age: 84 Year
  Sex: Female
  Weight: 97.52 kg

DRUGS (3)
  1. METAMUCIL [Suspect]
     Active Substance: PLANTAGO SEED
     Indication: PRODUCT USED FOR UNKNOWN INDICATION
  2. REVATIO [Concomitant]
     Active Substance: SILDENAFIL CITRATE
     Indication: PRODUCT USED FOR UNKNOWN INDICATION
  3. REMODULIN [Suspect]
     Active Substance: TREPROSTINIL
     Indication: PULMONARY ARTERIAL HYPERTENSION
     Dosage: 0.084 ?G/KG, CONTINUING
     Route: 041
     Dates: start: 20150324

REACTIONS (6)
  - Diarrhoea [Unknown]
  - Herpes zoster [Unknown]
  - Device issue [Unknown]
  - Faeces discoloured [Unknown]
  - Biliary tract disorder [Unknown]
  - Suture rupture [Unknown]

NARRATIVE: CASE EVENT DATE: 201610
